FAERS Safety Report 13095948 (Version 2)
Quarter: 2017Q2

REPORT INFORMATION
  Report Type: Report from Study
  Country: GB (occurrence: GB)
  Receive Date: 20170109
  Receipt Date: 20170417
  Transmission Date: 20170830
  Serious: Yes (Other)
  Sender: FDA-Public Use
  Company Number: GB-ROCHE-1875452

PATIENT
  Age: 45 Year
  Sex: Male
  Weight: 90 kg

DRUGS (21)
  1. ONDANSETRAN [Concomitant]
     Active Substance: ONDANSETRON HYDROCHLORIDE
     Indication: PROPHYLAXIS
     Route: 048
     Dates: start: 20161130
  2. ACICLOVIR [Concomitant]
     Active Substance: ACYCLOVIR
     Indication: PROPHYLAXIS
     Route: 048
     Dates: start: 20161129
  3. PARACETAMOL [Concomitant]
     Active Substance: ACETAMINOPHEN
     Indication: PROPHYLAXIS
     Route: 048
     Dates: start: 20161202
  4. CYCLOPHOSPHAMIDE. [Concomitant]
     Active Substance: CYCLOPHOSPHAMIDE
     Dosage: DAY 1, 15
     Route: 042
     Dates: start: 20161229
  5. CYTARABINE. [Concomitant]
     Active Substance: CYTARABINE
     Dosage: PHASE 2, DAY 2?DAY 2-26
     Route: 042
     Dates: start: 20161230
  6. DAUNORUBICIN [Concomitant]
     Active Substance: DAUNORUBICIN
     Dosage: DAY 1, 8, 15, 22.
     Route: 042
     Dates: start: 20161130, end: 20161221
  7. DEXAMETHASONE. [Concomitant]
     Active Substance: DEXAMETHASONE
     Route: 042
     Dates: start: 20161223
  8. OMEPRAZOLE. [Concomitant]
     Active Substance: OMEPRAZOLE
     Indication: PROPHYLAXIS
     Route: 048
     Dates: start: 20161129
  9. RITUXIMAB [Suspect]
     Active Substance: RITUXIMAB
     Indication: ACUTE LYMPHOCYTIC LEUKAEMIA
     Dosage: 4 DOSES. START DATE OF MOST RECENT PHASE OF PROTOCOL TREATMENT PRIOR TO SERIOUS ADVERSE EVENT: 28/DE
     Route: 042
     Dates: start: 20161202, end: 20161223
  10. COTRIMOXAZOLE [Concomitant]
     Active Substance: SULFAMETHOXAZOLE\TRIMETHOPRIM
     Indication: PROPHYLAXIS
     Dosage: SAT/SUN ONLY
     Route: 048
     Dates: start: 20161203
  11. ONCASPAR [Suspect]
     Active Substance: PEGASPARGASE
     Indication: ACUTE LYMPHOCYTIC LEUKAEMIA
     Dosage: 2100
     Route: 042
     Dates: start: 20161217, end: 20161217
  12. ENOXAPARIN [Concomitant]
     Active Substance: ENOXAPARIN
     Route: 058
     Dates: start: 20170103, end: 20170406
  13. AMBISOME [Concomitant]
     Active Substance: AMPHOTERICIN B
     Indication: PROPHYLAXIS
     Dosage: ALTERNATE DAYS
     Route: 042
     Dates: start: 20161130
  14. CYCLOPHOSPHAMIDE. [Concomitant]
     Active Substance: CYCLOPHOSPHAMIDE
     Dosage: PHASE 2, DAY 1
     Route: 065
     Dates: start: 20161229
  15. MERCAPTOPURINE. [Concomitant]
     Active Substance: MERCAPTOPURINE
     Dosage: PHASE 2, DAY 1?DAY 1-28
     Route: 048
     Dates: start: 20161229
  16. ENOXAPARIN [Concomitant]
     Active Substance: ENOXAPARIN
     Indication: PROPHYLAXIS
     Route: 058
     Dates: start: 20161228, end: 20170102
  17. ALLOPURINOL. [Concomitant]
     Active Substance: ALLOPURINOL
     Indication: PROPHYLAXIS
     Route: 048
     Dates: start: 20161201, end: 20161207
  18. METHOTREXATE. [Concomitant]
     Active Substance: METHOTREXATE
     Dosage: PHASE 2, DAY 1
     Route: 037
     Dates: start: 20161228, end: 20161228
  19. METHOTREXATE. [Concomitant]
     Active Substance: METHOTREXATE
     Route: 037
     Dates: start: 20161213, end: 20161213
  20. DEXAMETHASONE. [Concomitant]
     Active Substance: DEXAMETHASONE
     Route: 048
     Dates: start: 20161214, end: 20161217
  21. VINCRISTINE [Concomitant]
     Active Substance: VINCRISTINE
     Dosage: DAY 1, 8, 15, 22.
     Route: 042
     Dates: start: 20161130, end: 20161221

REACTIONS (1)
  - Embolism [Recovered/Resolved]

NARRATIVE: CASE EVENT DATE: 20170102
